FAERS Safety Report 24318860 (Version 1)
Quarter: 2024Q3

REPORT INFORMATION
  Report Type: Spontaneous
  Country: US (occurrence: US)
  Receive Date: 20240913
  Receipt Date: 20240913
  Transmission Date: 20241017
  Serious: No
  Sender: ABBVIE
  Company Number: US-ABBVIE-5909157

PATIENT
  Sex: Female

DRUGS (3)
  1. PRED FORTE [Suspect]
     Active Substance: PREDNISOLONE ACETATE
     Indication: Eye inflammation
     Route: 047
     Dates: start: 202408
  2. PRED FORTE [Suspect]
     Active Substance: PREDNISOLONE ACETATE
     Indication: Cystoid macular oedema
  3. BROMFENAC [Concomitant]
     Active Substance: BROMFENAC
     Indication: Cystoid macular oedema
     Dosage: 0.9%
     Dates: start: 202408

REACTIONS (5)
  - Infection [Unknown]
  - Drug ineffective [Unknown]
  - Vitreous floaters [Unknown]
  - Chills [Unknown]
  - Ophthalmological examination abnormal [Unknown]

NARRATIVE: CASE EVENT DATE: 20240101
